FAERS Safety Report 11460307 (Version 2)
Quarter: 2015Q3

REPORT INFORMATION
  Report Type: Spontaneous
  Country: GB (occurrence: GB)
  Receive Date: 20150904
  Receipt Date: 20150922
  Transmission Date: 20151125
  Serious: Yes (Death, Other)
  Sender: FDA-Public Use
  Company Number: GB-ASTELLAS-2015US031780

PATIENT
  Sex: Male

DRUGS (1)
  1. XTANDI [Suspect]
     Active Substance: ENZALUTAMIDE
     Indication: PRODUCT USED FOR UNKNOWN INDICATION
     Dosage: UNK, UNKNOWN FREQ.
     Route: 065

REACTIONS (5)
  - Cardiac failure congestive [Unknown]
  - Malignant neoplasm progression [Fatal]
  - Myocardial infarction [Unknown]
  - Confusional state [Unknown]
  - Seizure [Unknown]
